FAERS Safety Report 13399246 (Version 1)
Quarter: 2017Q2

REPORT INFORMATION
  Report Type: Spontaneous
  Country: US (occurrence: US)
  Receive Date: 20170404
  Receipt Date: 20170404
  Transmission Date: 20170830
  Serious: No
  Sender: FDA-Public Use
  Company Number: US-B.I. PHARMACEUTICALS,INC./RIDGEFIELD-2017-BI-017975

PATIENT
  Age: 59 Year
  Sex: Male

DRUGS (2)
  1. COMBIVENT [Suspect]
     Active Substance: ALBUTEROL SULFATE\IPRATROPIUM BROMIDE
     Indication: ASTHMA
     Dosage: UNIT DOSE/DAILY DOSE: 1 PUFF AS NEEDED UP TO FOUR PUFFS A DAY;  FORM STRENGTH: 20 MCG / 100 MCG; FOR
     Route: 055
     Dates: start: 2013
  2. COMBIVENT [Suspect]
     Active Substance: ALBUTEROL SULFATE\IPRATROPIUM BROMIDE
     Dosage: FORM STRENGTH: 18 MCG / 103 MCG       ADMINISTRATION CORRECT? NR (NOT REPORTED) ?ACTION(S) TAKEN WIT
     Route: 055
     Dates: end: 2013

REACTIONS (3)
  - Off label use [Unknown]
  - Off label use [Unknown]
  - Asthma [Recovered/Resolved]

NARRATIVE: CASE EVENT DATE: 2013
